FAERS Safety Report 5849154-0 (Version None)
Quarter: 2008Q3

REPORT INFORMATION
  Report Type: 
  Country: None (occurrence: None)
  Receive Date: 20080818
  Receipt Date: 20080818
  Transmission Date: 20090109
  Serious: No
  Sender: FDA-Public Use
  Company Number: None

PATIENT
  Age: 76 Year
  Sex: Female
  Weight: 65 kg

DRUGS (2)
  1. VANCOMYCIN [Suspect]
     Indication: INFECTION PROPHYLAXIS
     Dosage: 1 GM ONE TIME IV
     Route: 042
     Dates: start: 20080715, end: 20080729
  2. VANCOMYCIN [Suspect]
     Indication: SURGERY
     Dosage: 1 GM ONE TIME IV
     Route: 042
     Dates: start: 20080715, end: 20080729

REACTIONS (4)
  - FLUSHING [None]
  - PHARMACEUTICAL PRODUCT COMPLAINT [None]
  - PRURITUS [None]
  - URTICARIA [None]
